FAERS Safety Report 8541635 (Version 2)
Quarter: 2012Q4

REPORT INFORMATION
  Report Type: 
  Country: GB (occurrence: GB)
  Receive Date: 20120502
  Receipt Date: 20121003
  Transmission Date: 20130627
  Serious: No
  Sender: FDA-Public Use
  Company Number: GB-ELI_LILLY_AND_COMPANY-GB201204008938

PATIENT
  Sex: Female

DRUGS (2)
  1. HUMATROPE [Suspect]
     Indication: GROWTH HORMONE DEFICIENCY
     Dosage: UNK, unknown
     Route: 058
  2. HYDROCORTISONE                     /00028601/ [Concomitant]
     Dosage: 10 mg, qd

REACTIONS (1)
  - Monoclonal immunoglobulin present [Unknown]
